FAERS Safety Report 4639062-5 (Version None)
Quarter: 2005Q2

REPORT INFORMATION
  Report Type: 
  Country: None (occurrence: None)
  Receive Date: 20050419
  Receipt Date: 20030814
  Transmission Date: 20051028
  Serious: Yes (Death, Life-Threatening, Hospitalization)
  Sender: FDA-Public Use
  Company Number: PHRM2003FR02179

PATIENT
  Age: 63 Year
  Sex: Male
  Weight: 61 kg

DRUGS (5)
  1. GLEEVEC [Suspect]
     Indication: CHRONIC MYELOID LEUKAEMIA
     Dosage: 400 MG DAILY
     Route: 048
     Dates: start: 20020221
  2. INTRON A [Suspect]
     Dosage: 3 MIU, QW5
     Route: 058
     Dates: start: 20010315, end: 20020115
  3. GLUCOPHAGE [Concomitant]
  4. SOTALOL HCL [Concomitant]
  5. CREON [Concomitant]

REACTIONS (10)
  - ADRENAL GLAND CANCER METASTATIC [None]
  - CHEST PAIN [None]
  - DYSPNOEA [None]
  - GASTROINTESTINAL ULCER [None]
  - GENERAL PHYSICAL HEALTH DETERIORATION [None]
  - LUNG ADENOCARCINOMA [None]
  - PLEURAL EFFUSION [None]
  - PLEURAL FIBROSIS [None]
  - RESPIRATORY FAILURE [None]
  - TUMOUR MARKER INCREASED [None]
